FAERS Safety Report 14538441 (Version 2)
Quarter: 2018Q1

REPORT INFORMATION
  Report Type: Spontaneous
  Country: US (occurrence: US)
  Receive Date: 20180216
  Receipt Date: 20180227
  Transmission Date: 20180509
  Serious: Yes (Life-Threatening, Hospitalization, Other)
  Sender: FDA-Public Use
  Company Number: US-009507513-1802USA005192

PATIENT
  Sex: Female

DRUGS (2)
  1. STERILE DILUENT [Suspect]
     Active Substance: WATER
     Dosage: UNK
  2. ZOSTAVAX [Suspect]
     Active Substance: VARICELLA-ZOSTER VIRUS STRAIN OKA/MERCK LIVE ANTIGEN
     Indication: PROPHYLAXIS

REACTIONS (5)
  - Cerebrovascular accident [Not Recovered/Not Resolved]
  - Herpes zoster [Not Recovered/Not Resolved]
  - General symptom [Not Recovered/Not Resolved]
  - Suspected counterfeit product [Unknown]
  - Vaccination failure [Not Recovered/Not Resolved]

NARRATIVE: CASE EVENT DATE: 2013
